FAERS Safety Report 8249697-9 (Version None)
Quarter: 2012Q2

REPORT INFORMATION
  Report Type: 
  Country: None (occurrence: None)
  Receive Date: 20120402
  Receipt Date: 20120321
  Transmission Date: 20120825
  Serious: Yes (Other)
  Sender: FDA-Public Use
  Company Number: JP-BRISTOL-MYERS SQUIBB COMPANY-16480212

PATIENT
  Age: 9 Decade
  Sex: Female

DRUGS (1)
  1. METFORMIN HCL [Suspect]
     Dosage: TAB
     Route: 048

REACTIONS (1)
  - ACCIDENTAL EXPOSURE [None]
